FAERS Safety Report 12084317 (Version 2)
Quarter: 2017Q1

REPORT INFORMATION
  Report Type: Spontaneous
  Country: US (occurrence: US)
  Receive Date: 20160217
  Receipt Date: 20170217
  Transmission Date: 20170428
  Serious: Yes (Other)
  Sender: FDA-Public Use
  Company Number: US-OTSUKA-2015_002810

PATIENT
  Age: 1 Year
  Sex: Female
  Weight: 9.6 kg

DRUGS (11)
  1. BUSULFEX [Suspect]
     Active Substance: BUSULFAN
     Dosage: SINGLE DAILY DOSES ON DAY -5 AND -4
     Route: 042
  2. THIOTEPA. [Suspect]
     Active Substance: THIOTEPA
     Indication: CORD BLOOD TRANSPLANT THERAPY
     Dosage: 5 MG/KG ON DAY -5
     Route: 065
     Dates: start: 20111230, end: 20111230
  3. ATG [Suspect]
     Active Substance: LAPINE T-LYMPHOCYTE IMMUNE GLOBULIN
     Indication: CORD BLOOD TRANSPLANT THERAPY
     Dosage: 2 MG/KG, QD
     Route: 065
     Dates: start: 20120101, end: 20120104
  4. CYCLOSPORIN A [Concomitant]
     Active Substance: CYCLOSPORINE
     Indication: PROPHYLAXIS AGAINST GRAFT VERSUS HOST DISEASE
     Dosage: UNK
     Route: 065
     Dates: start: 20120104, end: 20121005
  5. PENTAMIDINE [Concomitant]
     Active Substance: PENTAMIDINE
     Indication: ANTIFUNGAL PROPHYLAXIS
     Dosage: 4 MG/KG, UNK
     Route: 042
     Dates: start: 201201, end: 201209
  6. BUSULFEX [Suspect]
     Active Substance: BUSULFAN
     Indication: CORD BLOOD TRANSPLANT THERAPY
     Dosage: 0.8 MG, SINGLE ON DAY -10
     Route: 042
     Dates: start: 20111231, end: 20120101
  7. LORAZEPAM. [Concomitant]
     Active Substance: LORAZEPAM
     Indication: CONVULSION PROPHYLAXIS
     Dosage: 0.05 MG/KG, QD
     Route: 065
     Dates: start: 20111227, end: 20120101
  8. FLUCONAZOLE. [Concomitant]
     Active Substance: FLUCONAZOLE
     Indication: ANTIFUNGAL PROPHYLAXIS
     Dosage: 3 TO 5 MG/KG/DAY
     Route: 065
     Dates: start: 20111226, end: 201210
  9. IMMUNE GLOBULIN NOS [Concomitant]
     Active Substance: IMMUNE GLOBULIN NOS
     Indication: PRODUCT USED FOR UNKNOWN INDICATION
     Dosage: 400 MG/KG, EVERY THREE WEEKS TILL DAY +100
     Route: 042
     Dates: start: 201201, end: 20130605
  10. FLUDARABINE [Suspect]
     Active Substance: FLUDARABINE PHOSPHATE
     Indication: CORD BLOOD TRANSPLANT THERAPY
     Dosage: 30 MG/M2, QD
     Route: 065
     Dates: start: 20111227, end: 20120101
  11. ACYCLOVIR. [Concomitant]
     Active Substance: ACYCLOVIR
     Indication: ANTIVIRAL PROPHYLAXIS
     Dosage: 250 MG/M2, BID
     Route: 065
     Dates: start: 20111206, end: 201210

REACTIONS (3)
  - Drug administration error [Unknown]
  - Off label use [Unknown]
  - Graft versus host disease in skin [Recovered/Resolved]

NARRATIVE: CASE EVENT DATE: 20120720
